FAERS Safety Report 24971673 (Version 1)
Quarter: 2025Q1

REPORT INFORMATION
  Report Type: Spontaneous
  Country: US (occurrence: None)
  Receive Date: 20250214
  Receipt Date: 20250214
  Transmission Date: 20250409
  Serious: Yes (Life-Threatening, Other)
  Sender: FDA-CTU
  Company Number: None

PATIENT
  Age: 69 Year
  Sex: Female
  Weight: 53.55 kg

DRUGS (2)
  1. XEMBIFY [Suspect]
     Active Substance: HUMAN IMMUNOGLOBULIN G
     Indication: Allergy to animal
     Route: 058
     Dates: start: 20241121, end: 20250211
  2. XEMBIFY [Suspect]
     Active Substance: HUMAN IMMUNOGLOBULIN G
     Indication: Allergy to animal
     Route: 058
     Dates: start: 20241121, end: 20250211

REACTIONS (8)
  - Throat tightness [None]
  - Urticaria [None]
  - Hypoaesthesia [None]
  - Sensory disturbance [None]
  - Palpitations [None]
  - Injection site urticaria [None]
  - Erythema [None]
  - Swollen tongue [None]

NARRATIVE: CASE EVENT DATE: 20250212
